FAERS Safety Report 13663981 (Version 1)
Quarter: 2017Q2

REPORT INFORMATION
  Report Type: Spontaneous
  Country: US (occurrence: US)
  Receive Date: 20170618
  Receipt Date: 20170618
  Transmission Date: 20170830
  Serious: No
  Sender: FDA-Public Use
  Company Number: None

PATIENT
  Age: 34 Year
  Sex: Female
  Weight: 65.7 kg

DRUGS (6)
  1. BOTOX [Suspect]
     Active Substance: ONABOTULINUMTOXINA
     Indication: SKIN WRINKLING
     Dosage: ?          QUANTITY:27 27 UNITS;OTHER FREQUENCY:THREE TO SIX MONTH;?
     Route: 058
     Dates: start: 20170315, end: 20170315
  2. MAGNESIUM [Concomitant]
     Active Substance: MAGNESIUM
  3. VITAMIN B12 [Concomitant]
     Active Substance: CYANOCOBALAMIN
  4. IRON [Concomitant]
     Active Substance: IRON
  5. VITAMIN D [Concomitant]
     Active Substance: CHOLECALCIFEROL
  6. ACYCLOVIR. [Concomitant]
     Active Substance: ACYCLOVIR

REACTIONS (2)
  - Injection site reaction [None]
  - Acne cystic [None]

NARRATIVE: CASE EVENT DATE: 20170317
